FAERS Safety Report 21574300 (Version 1)
Quarter: 2022Q4

REPORT INFORMATION
  Report Type: Report from Study
  Country: US (occurrence: US)
  Receive Date: 20221109
  Receipt Date: 20221109
  Transmission Date: 20230112
  Serious: No
  Sender: FDA-Public Use
  Company Number: US-ABBVIE-4140120

PATIENT
  Sex: Female

DRUGS (4)
  1. ORILISSA [Suspect]
     Active Substance: ELAGOLIX SODIUM
     Indication: Product used for unknown indication
     Route: 048
  2. Moderna [Concomitant]
     Indication: COVID-19 immunisation
     Dosage: 1ST DOSE , 1 IN 1 ONES
     Dates: start: 20210319, end: 20210319
  3. Moderna [Concomitant]
     Indication: COVID-19 immunisation
     Dosage: 2ND DOSE, 1 IN 1 ONES
     Dates: start: 20210416, end: 20210416
  4. Moderna [Concomitant]
     Indication: COVID-19 immunisation
     Dosage: 3RD DOSE, 1 IN 1 ONES
     Dates: start: 20220114, end: 20220114

REACTIONS (5)
  - Back pain [Unknown]
  - Condition aggravated [Unknown]
  - Pelvic pain [Unknown]
  - Endometriosis [Unknown]
  - Abnormal uterine bleeding [Unknown]
